FAERS Safety Report 24937620 (Version 1)
Quarter: 2025Q1

REPORT INFORMATION
  Report Type: Spontaneous
  Country: US (occurrence: US)
  Receive Date: 20250206
  Receipt Date: 20250206
  Transmission Date: 20250409
  Serious: No
  Sender: MERCK
  Company Number: US-009507513-2502USA001879

PATIENT
  Sex: Female

DRUGS (2)
  1. MOLNUPIRAVIR [Suspect]
     Active Substance: MOLNUPIRAVIR
     Indication: COVID-19
     Dosage: 800 MILLIGRAM, Q12H (4 CAPSULES BY MOUTH EVERY 12 HOURS FOR 5 DAYS)
     Route: 048
     Dates: start: 20220827, end: 20220831
  2. SYNTHROID [Concomitant]
     Active Substance: LEVOTHYROXINE SODIUM

REACTIONS (2)
  - Lymphoedema [Not Recovered/Not Resolved]
  - Therapeutic response unexpected [Unknown]
